FAERS Safety Report 5900816-6 (Version None)
Quarter: 2008Q3

REPORT INFORMATION
  Report Type: 
  Country: None (occurrence: None)
  Receive Date: 20080929
  Receipt Date: 20080917
  Transmission Date: 20090109
  Serious: Yes (Other)
  Sender: FDA-Public Use
  Company Number: DE-WYE-H06048408

PATIENT
  Age: 43 Year
  Sex: Male

DRUGS (1)
  1. CORDAREX [Suspect]
     Dosage: 200 MG (FREQUENCY UNSPECIFIED)
     Route: 048

REACTIONS (2)
  - EXOPHTHALMOS [None]
  - HYPERTHYROIDISM [None]
